FAERS Safety Report 19918028 (Version 2)
Quarter: 2024Q2

REPORT INFORMATION
  Report Type: Other
  Country: TR (occurrence: None)
  Receive Date: 20211005
  Receipt Date: 20240607
  Transmission Date: 20240717
  Serious: Yes (Other)
  Sender: FDA-Public Use
  Company Number: TR-ROCHE-2924585

PATIENT

DRUGS (4)
  1. MYCOPHENOLATE MOFETIL [Suspect]
     Active Substance: MYCOPHENOLATE MOFETIL
     Indication: Prophylaxis against transplant rejection
     Dosage: 948.5+/-553.1 MG/DAY FOR 145.8+/- 93.8 MONTHS
     Route: 065
  2. TACROLIMUS [Suspect]
     Active Substance: TACROLIMUS
     Indication: Prophylaxis against transplant rejection
     Dosage: 8.54+/-24.1 MG/DAY FOR 12.3+/-38.1 MONTHS
     Route: 065
  3. CYCLOSPORINE [Suspect]
     Active Substance: CYCLOSPORINE
     Indication: Prophylaxis against transplant rejection
     Dosage: 28.1+/-57.9 MG/DAY FOR 47.7+/-96.8 MONTHS
     Route: 065
  4. AZATHIOPRINE [Suspect]
     Active Substance: AZATHIOPRINE
     Indication: Prophylaxis against transplant rejection
     Dosage: 8.54+/- 24.1 MG/DAY FOR 12.3+/-38.1 MONTHS
     Route: 065

REACTIONS (58)
  - Haemangioma of skin [Unknown]
  - Seborrhoeic keratosis [Unknown]
  - Fibrous histiocytoma [Unknown]
  - Lipoma [Unknown]
  - Dermoid cyst [Unknown]
  - Melanocytic naevus [Unknown]
  - Acrochordon [Unknown]
  - Melanocytic naevus [Unknown]
  - Anogenital warts [Unknown]
  - Kaposi^s sarcoma [Unknown]
  - Squamous cell carcinoma [Unknown]
  - Fungal infection [Unknown]
  - Tinea pedis [Unknown]
  - Body tinea [Unknown]
  - Seborrhoeic dermatitis [Unknown]
  - Stasis dermatitis [Unknown]
  - Herpes zoster [Unknown]
  - Dermatitis contact [Unknown]
  - Drug eruption [Unknown]
  - Tinea versicolour [Unknown]
  - Pigmentation disorder [Unknown]
  - Ecchymosis [Unknown]
  - Androgenetic alopecia [Unknown]
  - Pruritus [Unknown]
  - Nail dystrophy [Unknown]
  - Diffuse alopecia [Unknown]
  - Onycholysis [Unknown]
  - Ingrowing nail [Unknown]
  - Dermatitis acneiform [Unknown]
  - Seborrhoea [Unknown]
  - Sebaceous hyperplasia [Unknown]
  - Gingival hypertrophy [Unknown]
  - Flushing [Unknown]
  - Telangiectasia [Unknown]
  - Arthropod infestation [Unknown]
  - Cushingoid [Unknown]
  - Purpura [Unknown]
  - Lipohypertrophy [Unknown]
  - Onychomycosis [Unknown]
  - Tinea cruris [Unknown]
  - Candida infection [Unknown]
  - Herpes simplex [Unknown]
  - Molluscum contagiosum [Unknown]
  - Folliculitis [Unknown]
  - Paronychia [Unknown]
  - Actinic keratosis [Unknown]
  - Lentigo [Unknown]
  - Sebaceous naevus [Unknown]
  - Ephelides [Unknown]
  - Dermatitis contact [Unknown]
  - Vitiligo [Unknown]
  - Nail discolouration [Unknown]
  - Nail deformation [Unknown]
  - Rosacea [Unknown]
  - Milia [Unknown]
  - Splinter haemorrhages [Unknown]
  - Synovial cyst [Unknown]
  - Graft complication [Unknown]
